FAERS Safety Report 8123793-9 (Version None)
Quarter: 2012Q1

REPORT INFORMATION
  Report Type: 
  Country: None (occurrence: None)
  Receive Date: 20120208
  Receipt Date: 20120130
  Transmission Date: 20120608
  Serious: Yes (Other)
  Sender: FDA-Public Use
  Company Number: CA-ASTRAZENECA-2012SE05264

PATIENT
  Age: 78 Year
  Sex: Female

DRUGS (8)
  1. FUROSEMIDE [Concomitant]
     Dosage: ONCE DAILY
     Route: 048
  2. ATACAND HCT [Suspect]
     Dosage: 16/12.5 ONCE A DAY
     Route: 048
     Dates: start: 20101201
  3. INSULIN [Concomitant]
     Route: 050
  4. AMILOZIDE [Concomitant]
     Dosage: ONCE DAILY
     Route: 048
  5. ACETAMINOPHEN [Concomitant]
     Dosage: AS REQUIRED
     Route: 048
  6. OMEPRAZOLE [Concomitant]
     Dosage: ONCE DAILY
     Route: 048
  7. ATACAND [Suspect]
     Route: 048
     Dates: start: 20110101
  8. METOPROLOL [Concomitant]
     Dosage: TWO TIMES A DAY
     Route: 048

REACTIONS (5)
  - BLINDNESS [None]
  - VISUAL ACUITY REDUCED [None]
  - DIABETES MELLITUS INADEQUATE CONTROL [None]
  - MICTURITION URGENCY [None]
  - RETINAL HAEMORRHAGE [None]
